FAERS Safety Report 8110995-0 (Version None)
Quarter: 2012Q1

REPORT INFORMATION
  Report Type: 
  Country: None (occurrence: None)
  Receive Date: 20120203
  Receipt Date: 20110204
  Transmission Date: 20120608
  Serious: No
  Sender: FDA-Public Use
  Company Number: US-GLAXOSMITHKLINE-A0911979A

PATIENT
  Age: 48 Year
  Sex: Female

DRUGS (5)
  1. LAMICTAL [Suspect]
     Dosage: 300MG AT NIGHT
     Route: 048
     Dates: start: 20050101
  2. GEODON [Concomitant]
  3. LAMOTRIGINE [Suspect]
     Indication: BIPOLAR DISORDER
     Route: 048
  4. LAMICTAL [Suspect]
     Indication: BIPOLAR DISORDER
     Dosage: 200MG AT NIGHT
     Route: 048
     Dates: start: 20000101, end: 20040101
  5. CLONAZEPAM [Concomitant]

REACTIONS (6)
  - SKIN EXFOLIATION [None]
  - LYMPHADENOPATHY [None]
  - CHEST PAIN [None]
  - RASH [None]
  - DRUG INEFFECTIVE [None]
  - ABDOMINAL PAIN [None]
